FAERS Safety Report 21356593 (Version 1)
Quarter: 2022Q3

REPORT INFORMATION
  Report Type: Spontaneous
  Country: US (occurrence: US)
  Receive Date: 20220920
  Receipt Date: 20220920
  Transmission Date: 20221026
  Serious: Yes (Life-Threatening, Hospitalization, Disabling)
  Sender: FDA-Public Use
  Company Number: US-BIOGEN-2022BI01146129

PATIENT
  Age: 68 Year
  Sex: Female
  Weight: 132 kg

DRUGS (1)
  1. ADUHELM [Suspect]
     Active Substance: ADUCANUMAB-AVWA
     Indication: Dementia
     Route: 050

REACTIONS (2)
  - Haemorrhage intracranial [Unknown]
  - Brain herniation [Unknown]

NARRATIVE: CASE EVENT DATE: 20220604
